FAERS Safety Report 9879464 (Version 1)
Quarter: 2014Q1

REPORT INFORMATION
  Report Type: Spontaneous
  Country: FR (occurrence: FR)
  Receive Date: 20140206
  Receipt Date: 20140206
  Transmission Date: 20141002
  Serious: Yes (Hospitalization)
  Sender: FDA-Public Use
  Company Number: PHHY2014FR012692

PATIENT
  Age: 35 Year
  Sex: Female

DRUGS (2)
  1. ACETYLSALICYLIC ACID [Suspect]
     Indication: ANTICOAGULANT THERAPY
     Route: 048
  2. FLUINDIONE [Suspect]
     Indication: ANTICOAGULANT THERAPY

REACTIONS (6)
  - Haemorrhagic stroke [Recovered/Resolved]
  - Cerebral haematoma [Recovered/Resolved]
  - Hydrocephalus [Recovering/Resolving]
  - Headache [Recovered/Resolved]
  - Vomiting [Recovered/Resolved]
  - Hemiparesis [Recovered/Resolved]
